FAERS Safety Report 13772454 (Version 1)
Quarter: 2017Q3

REPORT INFORMATION
  Report Type: Spontaneous
  Country: US (occurrence: US)
  Receive Date: 20170720
  Receipt Date: 20170720
  Transmission Date: 20171127
  Serious: Yes (Other)
  Sender: FDA-Public Use
  Company Number: US-ENDO PHARMACEUTICALS INC-2017-003889

PATIENT
  Age: 47 Year
  Sex: Female
  Weight: 70.3 kg

DRUGS (1)
  1. OPANA ER [Suspect]
     Active Substance: OXYMORPHONE HYDROCHLORIDE
     Indication: BONE PAIN
     Dosage: 5 MG, TID
     Route: 065
     Dates: start: 2013

REACTIONS (8)
  - Joint dislocation [Not Recovered/Not Resolved]
  - Femur fracture [Recovered/Resolved]
  - Ligament sprain [Not Recovered/Not Resolved]
  - Suicidal ideation [Unknown]
  - Fall [Recovered/Resolved]
  - Inappropriate schedule of drug administration [Unknown]
  - Drug ineffective [Unknown]
  - Incorrect drug administration duration [Unknown]

NARRATIVE: CASE EVENT DATE: 2013
